FAERS Safety Report 8877289 (Version 1)
Quarter: 2012Q4

REPORT INFORMATION
  Report Type: Spontaneous
  Country: DK (occurrence: None)
  Receive Date: 20121025
  Receipt Date: 20121025
  Transmission Date: 20130627
  Serious: Yes (Hospitalization)
  Sender: FDA-Public Use
  Company Number: 2012MA012664

PATIENT
  Age: 64 Year
  Sex: Female

DRUGS (3)
  1. CITALOPRAM HYDROBROMIDE TABLETS, 40 MG (PUREPAC) [Suspect]
     Dosage: 1680  MG;XI;PO
     Route: 048
     Dates: start: 20120804, end: 20120804
  2. PANTOPAN [Concomitant]
  3. BLOPRESID [Concomitant]

REACTIONS (4)
  - Convulsion [None]
  - Abdominal pain upper [None]
  - Arrhythmia [None]
  - Overdose [None]
